FAERS Safety Report 8827159 (Version 4)
Quarter: 2012Q4

REPORT INFORMATION
  Report Type: Report from Study
  Country: US (occurrence: US)
  Receive Date: 20121005
  Receipt Date: 20121023
  Transmission Date: 20130627
  Serious: Yes (Other)
  Sender: FDA-Public Use
  Company Number: US-TEVA-362888USA

PATIENT
  Age: 86 Year
  Sex: Male
  Weight: 73.3 kg

DRUGS (3)
  1. TREANDA [Suspect]
     Indication: LYMPHOMA
     Dates: start: 20120103, end: 20120521
  2. RITUXIMAB [Suspect]
     Indication: LYMPHOMA
     Dates: start: 20120103, end: 20120913
  3. BORTEZOMIB [Suspect]
     Dates: start: 20120103, end: 20120521

REACTIONS (3)
  - Basal cell carcinoma [Recovered/Resolved]
  - Squamous cell carcinoma [Recovered/Resolved]
  - Second primary malignancy [Recovered/Resolved]
